FAERS Safety Report 4941037-3 (Version None)
Quarter: 2006Q1

REPORT INFORMATION
  Report Type: 
  Country: None (occurrence: None)
  Receive Date: 20060307
  Receipt Date: 20060301
  Transmission Date: 20060701
  Serious: Yes (Death)
  Sender: FDA-Public Use
  Company Number: RTD20060005

PATIENT
  Age: 38 Year
  Sex: Female

DRUGS (12)
  1. RANITIDINE [Suspect]
     Dosage: 50 MG IV
     Route: 042
     Dates: start: 20050101, end: 20050101
  2. CEFAZOLIN [Suspect]
     Dosage: 4 G IV
     Route: 042
     Dates: start: 20050101, end: 20050101
  3. CABERGOLINE [Concomitant]
  4. LANREOTIDE [Concomitant]
  5. LEVOTHYROXINE SODIUM [Concomitant]
  6. PROPOFOL [Concomitant]
  7. SUFENTANIL CITRATE [Concomitant]
  8. NIMBEX [Concomitant]
  9. METHYLPREDNISOLONE [Concomitant]
  10. DEXAMETHASONE TAB [Concomitant]
  11. KETOROLAC [Concomitant]
  12. ACETAMINOPHEN [Concomitant]

REACTIONS (11)
  - ACUTE MYOCARDIAL INFARCTION [None]
  - ANAEMIA [None]
  - CARDIAC DISORDER [None]
  - CARDIOGENIC SHOCK [None]
  - DRUG HYPERSENSITIVITY [None]
  - EOSINOPHILIC MYOCARDITIS [None]
  - PULMONARY CONGESTION [None]
  - RESPIRATORY FAILURE [None]
  - RESPIRATORY RATE INCREASED [None]
  - SINUS TACHYCARDIA [None]
  - SUDDEN DEATH [None]
